FAERS Safety Report 9277581 (Version 1)
Quarter: 2013Q2

REPORT INFORMATION
  Report Type: Spontaneous
  Country: US (occurrence: None)
  Receive Date: 20130503
  Receipt Date: 20130503
  Transmission Date: 20140414
  Serious: Yes (Other)
  Sender: FDA-Public Use
  Company Number: None

PATIENT
  Age: 74 Year
  Sex: Female
  Weight: 68.49 kg

DRUGS (1)
  1. BENICAR HCT [Suspect]
     Indication: HYPERTENSION
     Dosage: 1 PILL, DAILY, PO
     Route: 048
     Dates: start: 20130426, end: 20130501

REACTIONS (9)
  - Thirst [None]
  - Pollakiuria [None]
  - Hiccups [None]
  - Asthenia [None]
  - Fatigue [None]
  - Somnolence [None]
  - Myalgia [None]
  - Muscle spasms [None]
  - Heart rate increased [None]
